FAERS Safety Report 8236254-3 (Version None)
Quarter: 2012Q1

REPORT INFORMATION
  Report Type: 
  Country: None (occurrence: None)
  Receive Date: 20120326
  Receipt Date: 20120326
  Transmission Date: 20120608
  Serious: Yes (Hospitalization)
  Sender: FDA-Public Use
  Company Number: None

PATIENT
  Age: 77 Year
  Sex: Female
  Weight: 71.4 kg

DRUGS (1)
  1. SUTENT [Suspect]
     Indication: GASTROINTESTINAL STROMAL TUMOUR
     Dosage: 37.5MG DAILY PO
     Route: 048

REACTIONS (2)
  - HALLUCINATION, VISUAL [None]
  - TRANSIENT ISCHAEMIC ATTACK [None]
